FAERS Safety Report 10187367 (Version 2)
Quarter: 2014Q2

REPORT INFORMATION
  Report Type: Report from Study
  Country: CA (occurrence: CA)
  Receive Date: 20140522
  Receipt Date: 20140530
  Transmission Date: 20141212
  Serious: Yes (Hospitalization)
  Sender: FDA-Public Use
  Company Number: CA-JNJFOC-20140513367

PATIENT
  Age: 17 Year
  Sex: Female
  Weight: 45.81 kg

DRUGS (3)
  1. REMICADE [Suspect]
     Indication: CROHN^S DISEASE
     Route: 042
     Dates: start: 20110121
  2. IMURAN [Concomitant]
     Route: 048
  3. CIPROLEX [Concomitant]
     Route: 048

REACTIONS (1)
  - Intestinal obstruction [Recovering/Resolving]
